FAERS Safety Report 8229184 (Version 2)
Quarter: 2013Q2

REPORT INFORMATION
  Report Type: Spontaneous
  Country: US (occurrence: US)
  Receive Date: 20111104
  Receipt Date: 20130612
  Transmission Date: 20140414
  Serious: No
  Sender: FDA-Public Use
  Company Number: US-B.I. PHARMACEUTICALS,INC./RIDGEFIELD-2011-BP-24986BP

PATIENT
  Age: 82 Year
  Sex: Female

DRUGS (6)
  1. SPIRIVA HANDIHALER [Suspect]
     Indication: CHRONIC OBSTRUCTIVE PULMONARY DISEASE
     Dosage: 18 MCG
     Route: 055
     Dates: start: 2011
  2. SPIRIVA HANDIHALER [Suspect]
     Indication: EMPHYSEMA
  3. HCTZ [Concomitant]
     Indication: HYPERTENSION
     Route: 048
  4. OXYGEN [Concomitant]
     Indication: CHRONIC OBSTRUCTIVE PULMONARY DISEASE
     Route: 055
  5. VERAPAMIL [Concomitant]
     Route: 048
  6. BENICAR [Concomitant]
     Indication: HYPERTENSION
     Route: 048

REACTIONS (6)
  - Dry eye [Not Recovered/Not Resolved]
  - Atrial fibrillation [Recovered/Resolved]
  - Epistaxis [Recovered/Resolved]
  - Dysphonia [Not Recovered/Not Resolved]
  - Arthralgia [Not Recovered/Not Resolved]
  - Oropharyngeal pain [Not Recovered/Not Resolved]
